FAERS Safety Report 11394118 (Version 1)
Quarter: 2015Q3

REPORT INFORMATION
  Report Type: Report from Study
  Country: MX (occurrence: MX)
  Receive Date: 20150819
  Receipt Date: 20150819
  Transmission Date: 20151125
  Serious: Yes (Other)
  Sender: FDA-Public Use
  Company Number: PHHY2015MX093129

PATIENT
  Age: 89 Year
  Sex: Female

DRUGS (3)
  1. LOSARTAN. [Concomitant]
     Active Substance: LOSARTAN
     Indication: CARDIAC DISORDER
     Dosage: 2 DF, ONE AT MORNING AND ONE AT AFTERNOON
     Route: 065
  2. EXFORGE HCT [Suspect]
     Active Substance: AMLODIPINE BESYLATE\HYDROCHLOROTHIAZIDE\VALSARTAN
     Indication: HYPERTENSION
     Dosage: 1 DF, UNK
     Route: 065
  3. EXFORGE HCT [Suspect]
     Active Substance: AMLODIPINE BESYLATE\HYDROCHLOROTHIAZIDE\VALSARTAN
     Dosage: 1 DF (10/320/25), QD
     Route: 048
     Dates: start: 20150729

REACTIONS (2)
  - Intervertebral disc disorder [Unknown]
  - Hypertension [Recovered/Resolved]

NARRATIVE: CASE EVENT DATE: 201305
